FAERS Safety Report 4321883-X (Version None)
Quarter: 2004Q1

REPORT INFORMATION
  Report Type: 
  Country: None (occurrence: None)
  Receive Date: 20040322
  Receipt Date: 20040116
  Transmission Date: 20041129
  Serious: No
  Sender: FDA-Public Use
  Company Number: A-US2004-04294

PATIENT
  Age: 78 Year
  Sex: Male

DRUGS (1)
  1. TRACLEER [Suspect]
     Dosage: ORAL
     Route: 048

REACTIONS (1)
  - LIVER FUNCTION TEST ABNORMAL [None]
